FAERS Safety Report 7920815-2 (Version None)
Quarter: 2011Q4

REPORT INFORMATION
  Report Type: 
  Country: None (occurrence: None)
  Receive Date: 20111117
  Receipt Date: 20110822
  Transmission Date: 20120403
  Serious: No
  Sender: FDA-Public Use
  Company Number: US-GLAXOSMITHKLINE-A0932054A

PATIENT
  Age: 50 Year
  Sex: Female

DRUGS (5)
  1. MORPHINE [Concomitant]
  2. CALCITRIOL [Concomitant]
  3. VOTRIENT [Suspect]
     Indication: THYROID CANCER METASTATIC
     Dosage: 800MG PER DAY
     Route: 048
     Dates: start: 20110609
  4. VIACTIV [Concomitant]
  5. SYNTHROID [Concomitant]

REACTIONS (2)
  - OFF LABEL USE [None]
  - CONSTIPATION [None]
